FAERS Safety Report 15293626 (Version 1)
Quarter: 2018Q3

REPORT INFORMATION
  Report Type: Spontaneous
  Country: FR (occurrence: FR)
  Receive Date: 20180820
  Receipt Date: 20180820
  Transmission Date: 20181010
  Serious: Yes (Hospitalization)
  Sender: FDA-Public Use
  Company Number: FR-AUROBINDO-AUR-APL-2018-042220

PATIENT
  Age: 17 Year
  Sex: Female
  Weight: 77 kg

DRUGS (1)
  1. PARACETAMOL [Suspect]
     Active Substance: ACETAMINOPHEN
     Indication: PRODUCT USED FOR UNKNOWN INDICATION
     Dosage: 20 GRAM IN TOTAL
     Route: 048
     Dates: start: 20180723, end: 20180723

REACTIONS (2)
  - Headache [Recovered/Resolved]
  - Analgesic drug level increased [Recovered/Resolved]

NARRATIVE: CASE EVENT DATE: 20180723
